FAERS Safety Report 6180476-2 (Version None)
Quarter: 2009Q2

REPORT INFORMATION
  Report Type: 
  Country: None (occurrence: None)
  Receive Date: 20090506
  Receipt Date: 20090427
  Transmission Date: 20091009
  Serious: Yes (Hospitalization)
  Sender: FDA-Public Use
  Company Number: PHHY2009US16145

PATIENT

DRUGS (5)
  1. MYFORTIC [Suspect]
     Indication: RENAL TRANSPLANT
  2. CYCLOSPORINE [Suspect]
     Indication: RENAL TRANSPLANT
  3. PREDNISONE [Suspect]
  4. HAART [Suspect]
  5. ANTIHYPERTENSIVE DRUGS [Concomitant]

REACTIONS (13)
  - ABDOMINAL PAIN [None]
  - ABDOMINAL TENDERNESS [None]
  - ARTHRALGIA [None]
  - BACTERAEMIA [None]
  - BLOOD CREATININE INCREASED [None]
  - CAMPYLOBACTER INFECTION [None]
  - CHOLECYSTITIS [None]
  - FATIGUE [None]
  - HYPOTENSION [None]
  - IMMUNOSUPPRESSANT DRUG LEVEL INCREASED [None]
  - NAUSEA [None]
  - PYREXIA [None]
  - VOMITING [None]
